FAERS Safety Report 25346406 (Version 1)
Quarter: 2025Q2

REPORT INFORMATION
  Report Type: Other
  Country: ES (occurrence: ES)
  Receive Date: 20250522
  Receipt Date: 20250522
  Transmission Date: 20250717
  Serious: Yes (Life-Threatening, Hospitalization, Disabling, Other)
  Sender: B BRAUN
  Company Number: ES-B.Braun Medical Inc.-2177218

PATIENT
  Age: 68 Year
  Sex: Female

DRUGS (1)
  1. LIDOCAINE HYDROCHLORIDE [Suspect]
     Active Substance: LIDOCAINE HYDROCHLORIDE
     Indication: Biopsy muscle

REACTIONS (1)
  - Myasthenia gravis crisis [Recovered/Resolved]
